FAERS Safety Report 7197017-3 (Version None)
Quarter: 2010Q4

REPORT INFORMATION
  Report Type: 
  Country: None (occurrence: None)
  Receive Date: 20101224
  Receipt Date: 20101213
  Transmission Date: 20110411
  Serious: Yes (Other)
  Sender: FDA-Public Use
  Company Number: PHHY2010CA84819

PATIENT
  Sex: Female

DRUGS (2)
  1. ACLASTA [Suspect]
     Indication: OSTEOPOROSIS
     Dosage: UNK
     Dates: start: 20081218
  2. ACLASTA [Suspect]
     Dosage: UNK
     Dates: start: 20091218

REACTIONS (3)
  - DYSURIA [None]
  - INFLUENZA [None]
  - URINARY TRACT INFECTION [None]
